FAERS Safety Report 9094501 (Version 3)
Quarter: 2013Q1

REPORT INFORMATION
  Report Type: Spontaneous
  Country: JP (occurrence: JP)
  Receive Date: 20130219
  Receipt Date: 20130311
  Transmission Date: 20140127
  Serious: Yes (Other)
  Sender: FDA-Public Use
  Company Number: JP-009507513-1302JPN007555

PATIENT
  Age: 31 Year
  Sex: Male

DRUGS (19)
  1. GASTER [Suspect]
     Dosage: 10 MG, UID/QD
     Route: 042
  2. SEROQUEL [Suspect]
     Dosage: 200 MG, UID/QD
     Route: 048
  3. FLUNITRAZEPAM [Suspect]
     Indication: EPILEPSY
     Dosage: 30 MG (1 MG X 30 TABLETS), UNK
     Route: 048
  4. FLUNITRAZEPAM [Suspect]
     Dosage: 1 MG/DAY
     Route: 048
  5. FLUNITRAZEPAM [Suspect]
     Dosage: 1 MG/DAY
     Route: 048
  6. DIAZEPAM [Suspect]
     Indication: EPILEPSY
     Dosage: 100 MG (2 MG X 50 TABLETS), UNK
     Route: 048
  7. DIAZEPAM [Suspect]
     Dosage: 10 MG/DAY
     Route: 048
  8. DIAZEPAM [Suspect]
     Dosage: 4 MG/DAY
     Route: 048
  9. DIAZEPAM [Suspect]
     Dosage: 6 MG/DAY
     Route: 048
  10. AMPICILLIN SODIUM (+) SULBACTAM SODIUM [Suspect]
     Indication: PNEUMONIA ASPIRATION
     Dosage: 3 G/DAY
     Route: 041
  11. LAMICTAL [Suspect]
     Dosage: 1000 MG (25 MG X 40 TABLETS), QD
     Route: 048
  12. LAMICTAL [Suspect]
     Dosage: 50 MG/DAY
     Route: 048
  13. NITRAZEPAM [Suspect]
     Indication: EPILEPSY
     Dosage: 200 MG (5 MG X 40 TABLETS), UNK
     Route: 048
  14. NITRAZEPAM [Suspect]
     Dosage: 10 MG/DAY
     Route: 048
  15. RISPERIDONE [Suspect]
     Dosage: 1 ML, UNK
     Route: 048
  16. CHARCOAL, ACTIVATED [Concomitant]
  17. CHLORPHENIRAMINE MALEATE [Concomitant]
     Dosage: UNK
     Route: 048
  18. OXYGEN [Concomitant]
  19. ZONISAMIDE [Concomitant]
     Indication: EPILEPSY
     Dosage: 100 MG/DAY
     Route: 048

REACTIONS (3)
  - Drug eruption [Recovered/Resolved]
  - Rhabdomyolysis [Unknown]
  - Off label use [Unknown]
